FAERS Safety Report 9270219 (Version 2)
Quarter: 2013Q3

REPORT INFORMATION
  Report Type: Spontaneous
  Country: US (occurrence: US)
  Receive Date: 20130503
  Receipt Date: 20130702
  Transmission Date: 20140515
  Serious: Yes (Hospitalization)
  Sender: FDA-Public Use
  Company Number: US-BAYER-2013-052849

PATIENT
  Age: 66 Year
  Sex: Female

DRUGS (1)
  1. BETAPACE [Suspect]
     Indication: VENTRICULAR ARRHYTHMIA
     Dosage: 120 MG, UNK
     Route: 048
     Dates: start: 1996

REACTIONS (3)
  - Dyspnoea [Recovered/Resolved]
  - Heart rate increased [Recovered/Resolved]
  - Drug ineffective [None]
